FAERS Safety Report 6348559-1 (Version None)
Quarter: 2009Q3

REPORT INFORMATION
  Report Type: 
  Country: None (occurrence: None)
  Receive Date: 20090911
  Receipt Date: 20070615
  Transmission Date: 20100115
  Serious: Yes (Hospitalization, Other)
  Sender: FDA-Public Use
  Company Number: US-ASTRAZENECA-2006UW24199

PATIENT
  Age: 16415 Day
  Sex: Female
  Weight: 72.6 kg

DRUGS (16)
  1. SEROQUEL [Suspect]
     Indication: DEPRESSION
     Dosage: 200 MG-300 MG
     Route: 048
     Dates: start: 20010226
  2. SEROQUEL [Suspect]
     Route: 048
  3. RISPERDAL [Concomitant]
  4. ZYPREXA [Concomitant]
     Dosage: 5 MG-20 MG
     Dates: start: 20000914
  5. ALLEGRA [Concomitant]
     Route: 048
     Dates: start: 20010330
  6. NAPROXEN [Concomitant]
     Dosage: 500 MG-1100 MG
     Route: 048
     Dates: start: 20010227
  7. EFFEXOR XR [Concomitant]
     Route: 048
     Dates: start: 20010226
  8. EFFEXOR XR [Concomitant]
     Dates: start: 20010326
  9. NASONEX [Concomitant]
     Dosage: TWO SPRAY IN EACH NOSTRIL ONCE A DAY
     Route: 045
     Dates: start: 20010330
  10. HUMALOG MIX 75/25 VIAL [Concomitant]
     Dosage: 60 UNITS EVERY MORNING AND 45 UNITS EVERY EVENING
     Dates: start: 20010312
  11. VANCENASE AQ [Concomitant]
     Dosage: ONE SPRAY IN EACH NOSTRIL TWICE DAILY
     Route: 045
     Dates: start: 20010301
  12. NEURONTIN [Concomitant]
     Route: 048
     Dates: start: 20010924
  13. NEURONTIN [Concomitant]
     Route: 048
     Dates: start: 20011010
  14. ACETAMINOPHEN AND OXYCODONE HCL [Concomitant]
     Indication: PAIN
     Dosage: 5 MG/325 MG, EVERY SIX HOUR
     Route: 048
     Dates: start: 20010926
  15. LANTUS INSULIN 10 ML [Concomitant]
     Dosage: AS DIRECTED
     Dates: start: 20010924
  16. MIACALCIN [Concomitant]
     Dosage: ONE SPRAY ALTERNATING NOSTRIL EVERY DAY
     Route: 045
     Dates: start: 20010917

REACTIONS (18)
  - DIABETES MELLITUS [None]
  - DIABETES MELLITUS INADEQUATE CONTROL [None]
  - DIABETIC COMA [None]
  - DIABETIC COMPLICATION [None]
  - DIABETIC END STAGE RENAL DISEASE [None]
  - DIABETIC FOOT [None]
  - DIABETIC GASTROPARESIS [None]
  - DIABETIC GASTROPATHY [None]
  - DIABETIC KETOACIDOSIS [None]
  - DIABETIC NEPHROPATHY [None]
  - DIABETIC NEUROPATHY [None]
  - DIABETIC RETINAL OEDEMA [None]
  - HYPOGLYCAEMIA [None]
  - NEPHROPATHY [None]
  - PERIPHERAL VASCULAR DISORDER [None]
  - RENAL FAILURE ACUTE [None]
  - RENAL FAILURE CHRONIC [None]
  - RETINOPATHY [None]
